FAERS Safety Report 15659507 (Version 2)
Quarter: 2018Q4

REPORT INFORMATION
  Report Type: Spontaneous
  Country: GB (occurrence: GB)
  Receive Date: 20181127
  Receipt Date: 20181128
  Transmission Date: 20190205
  Serious: Yes (Other)
  Sender: FDA-Public Use
  Company Number: GB-TEVA-2018-GB-978790

PATIENT
  Age: 72 Year
  Sex: Female
  Weight: 62 kg

DRUGS (8)
  1. CODEINE PHOSPHATE [Concomitant]
     Active Substance: CODEINE PHOSPHATE
     Dosage: 1-2 TO BE TAKEN
     Route: 065
     Dates: start: 20180607
  2. TILDIEM [Concomitant]
     Active Substance: DILTIAZEM HYDROCHLORIDE
     Dosage: 2 DOSAGE FORMS DAILY;
     Route: 065
     Dates: start: 20180607
  3. FLUCLOXACILLIN [Concomitant]
     Active Substance: FLUCLOXACILLIN
     Dosage: 4 DOSAGE FORMS DAILY;
     Route: 065
     Dates: start: 20180924, end: 20181001
  4. ATORVASTATIN [Concomitant]
     Active Substance: ATORVASTATIN
     Dosage: 1 DOSAGE FORMS DAILY; IN MORNING
     Route: 065
     Dates: start: 20180607
  5. NITROFURANTOIN. [Suspect]
     Active Substance: NITROFURANTOIN
     Indication: URINARY TRACT INFECTION
     Route: 065
     Dates: start: 20181015, end: 20181018
  6. AMOXICILLIN. [Concomitant]
     Active Substance: AMOXICILLIN
     Dosage: 3 DOSAGE FORMS DAILY;
     Route: 065
     Dates: start: 20181015, end: 20181016
  7. NITROFURANTOIN. [Suspect]
     Active Substance: NITROFURANTOIN
     Route: 065
     Dates: start: 20181026
  8. PARACETAMOL [Concomitant]
     Active Substance: ACETAMINOPHEN
     Dosage: TAKE 2 TABLETS
     Route: 065
     Dates: start: 20180607

REACTIONS (3)
  - Vomiting [Recovered/Resolved]
  - Muscular weakness [Recovered/Resolved]
  - Tremor [Recovered/Resolved]

NARRATIVE: CASE EVENT DATE: 20181026
